FAERS Safety Report 17981932 (Version 5)
Quarter: 2022Q2

REPORT INFORMATION
  Report Type: Spontaneous
  Country: US (occurrence: US)
  Receive Date: 20200706
  Receipt Date: 20220506
  Transmission Date: 20220721
  Serious: Yes (Hospitalization, Other)
  Sender: FDA-Public Use
  Company Number: US-GILEAD-2020-0475831

PATIENT
  Age: 53 Year
  Sex: Female
  Weight: 81.633 kg

DRUGS (50)
  1. VIREAD [Suspect]
     Active Substance: TENOFOVIR DISOPROXIL FUMARATE
     Indication: HIV infection
     Dosage: UNK
     Route: 048
     Dates: start: 2001, end: 2013
  2. VIREAD [Suspect]
     Active Substance: TENOFOVIR DISOPROXIL FUMARATE
     Dosage: UNK
     Route: 048
     Dates: start: 200208, end: 2013
  3. VIREAD [Suspect]
     Active Substance: TENOFOVIR DISOPROXIL FUMARATE
     Dosage: UNK
     Route: 048
     Dates: start: 20020916, end: 20130114
  4. VIREAD [Suspect]
     Active Substance: TENOFOVIR DISOPROXIL FUMARATE
     Dosage: UNK
     Route: 048
     Dates: start: 20020916, end: 201008
  5. VIREAD [Suspect]
     Active Substance: TENOFOVIR DISOPROXIL FUMARATE
     Dosage: UNK
     Route: 048
     Dates: start: 20100917, end: 20130103
  6. TRUVADA [Suspect]
     Active Substance: EMTRICITABINE\TENOFOVIR DISOPROXIL FUMARATE
     Indication: HIV infection
     Dosage: UNK
     Route: 048
     Dates: start: 2013, end: 2015
  7. TRUVADA [Suspect]
     Active Substance: EMTRICITABINE\TENOFOVIR DISOPROXIL FUMARATE
     Dosage: UNK
     Route: 048
     Dates: start: 20130114, end: 20150821
  8. TRUVADA [Suspect]
     Active Substance: EMTRICITABINE\TENOFOVIR DISOPROXIL FUMARATE
     Dosage: UNK
     Route: 048
     Dates: start: 20130114, end: 201407
  9. TRUVADA [Suspect]
     Active Substance: EMTRICITABINE\TENOFOVIR DISOPROXIL FUMARATE
     Dosage: UNK
     Route: 048
     Dates: start: 20140819, end: 20141001
  10. TRUVADA [Suspect]
     Active Substance: EMTRICITABINE\TENOFOVIR DISOPROXIL FUMARATE
     Dosage: UNK
     Route: 048
     Dates: start: 20141001, end: 20150818
  11. LOPRESSOR [Concomitant]
     Active Substance: METOPROLOL TARTRATE
  12. NORVASC [Concomitant]
     Active Substance: AMLODIPINE BESYLATE
  13. LIPITOR [Concomitant]
     Active Substance: ATORVASTATIN CALCIUM
  14. ACETAMINOPHEN [Concomitant]
     Active Substance: ACETAMINOPHEN
  15. ALENDRONATE [Concomitant]
     Active Substance: ALENDRONATE SODIUM
  16. AMOXICILLIN [Concomitant]
     Active Substance: AMOXICILLIN
  17. ASPIRIN [Concomitant]
     Active Substance: ASPIRIN
  18. ATORVASTATIN [Concomitant]
     Active Substance: ATORVASTATIN
  19. CORTISONE [Concomitant]
     Active Substance: CORTISONE
  20. ESOMEPRAZOLE [Concomitant]
     Active Substance: ESOMEPRAZOLE
  21. FLEET LAXATIVE [Concomitant]
  22. LOVENOX [Concomitant]
     Active Substance: ENOXAPARIN SODIUM
  23. OMEPRAZOLE [Concomitant]
     Active Substance: OMEPRAZOLE
  24. PREDNISONE [Concomitant]
     Active Substance: PREDNISONE
  25. TETRACYCLINE [Concomitant]
     Active Substance: TETRACYCLINE
  26. TRIAMCINOLONE [Concomitant]
     Active Substance: TRIAMCINOLONE
  27. EPZICOM [Concomitant]
     Active Substance: ABACAVIR SULFATE\LAMIVUDINE
     Indication: HIV infection
  28. KALETRA [Concomitant]
     Active Substance: LOPINAVIR\RITONAVIR
     Indication: HIV infection
  29. NORVIR [Concomitant]
     Active Substance: RITONAVIR
     Indication: HIV infection
  30. PREZISTA [Concomitant]
     Active Substance: DARUNAVIR ETHANOLATE
  31. SUSTIVA [Concomitant]
     Active Substance: EFAVIRENZ
     Indication: HIV infection
  32. TRIUMEQ [Concomitant]
     Active Substance: ABACAVIR SULFATE\DOLUTEGRAVIR SODIUM\LAMIVUDINE
     Indication: HIV infection
  33. VIDEX [Concomitant]
     Active Substance: DIDANOSINE
     Indication: HIV infection
  34. ZERIT [Concomitant]
     Active Substance: STAVUDINE
  35. TYLENOL [Concomitant]
     Active Substance: ACETAMINOPHEN
  36. FOSAMAX [Concomitant]
     Active Substance: ALENDRONATE SODIUM
  37. COLACE [Concomitant]
     Active Substance: DOCUSATE SODIUM
  38. LEVAQUIN [Concomitant]
     Active Substance: LEVOFLOXACIN
  39. SYMBICORT [Concomitant]
     Active Substance: BUDESONIDE\FORMOTEROL FUMARATE DIHYDRATE
  40. GLIPIZIDE [Concomitant]
     Active Substance: GLIPIZIDE
  41. TRAZODONE [Concomitant]
     Active Substance: TRAZODONE HYDROCHLORIDE
  42. ALBUTEROL SULFATE [Concomitant]
     Active Substance: ALBUTEROL SULFATE
  43. FLOVENT HFA [Concomitant]
     Active Substance: FLUTICASONE PROPIONATE
  44. XOPENEX [Concomitant]
     Active Substance: LEVALBUTEROL HYDROCHLORIDE
  45. PREDNISOLONE [Concomitant]
     Active Substance: PREDNISOLONE
  46. RETROVIR [Concomitant]
     Active Substance: ZIDOVUDINE
  47. REYATAZ [Concomitant]
     Active Substance: ATAZANAVIR SULFATE
  48. TIVICAY [Concomitant]
     Active Substance: DOLUTEGRAVIR SODIUM
  49. TRIZIVIR [Concomitant]
     Active Substance: ABACAVIR SULFATE\LAMIVUDINE\ZIDOVUDINE
  50. IBUPROFEN [Concomitant]
     Active Substance: IBUPROFEN

REACTIONS (13)
  - Chronic kidney disease [Not Recovered/Not Resolved]
  - End stage renal disease [Not Recovered/Not Resolved]
  - Acute kidney injury [Not Recovered/Not Resolved]
  - Renal failure [Unknown]
  - Bone density decreased [Unknown]
  - Osteopenia [Recovered/Resolved]
  - Osteopenia [Recovered/Resolved]
  - Emotional distress [Unknown]
  - Pain [Unknown]
  - Bone loss [Unknown]
  - Loss of personal independence in daily activities [Unknown]
  - Nausea [Unknown]
  - Vomiting [Unknown]

NARRATIVE: CASE EVENT DATE: 20070809
